FAERS Safety Report 7743425-9 (Version None)
Quarter: 2011Q3

REPORT INFORMATION
  Report Type: 
  Country: None (occurrence: None)
  Receive Date: 20110912
  Receipt Date: 20110907
  Transmission Date: 20111222
  Serious: Yes (Death)
  Sender: FDA-Public Use
  Company Number: PHEH2011US02420

PATIENT
  Sex: Female
  Weight: 46.259 kg

DRUGS (11)
  1. RECLAST [Suspect]
     Dosage: 5 MG, ONCE PER YEAR
     Route: 042
     Dates: start: 20100125
  2. PLAVIX [Concomitant]
     Dosage: 75 MG, UNK
  3. CITALOPRAM HYDROBROMIDE [Concomitant]
     Dosage: 20 MG, UNK
  4. MULTIVITAMIN [Concomitant]
     Dosage: UNK UKN, UNK
  5. LEVOTHYROXINE SODIUM [Concomitant]
     Dosage: 0.1 MG, QD
  6. DIGOXIN [Concomitant]
     Dosage: 0.125 UKN, UNK
  7. PRADAXA [Concomitant]
     Dosage: 150 MG, BID
  8. ATENOLOL [Concomitant]
     Dosage: 25 G, BID
  9. PROBIOTICS [Concomitant]
     Dosage: UNK UKN, UNK
  10. ARICEPT [Concomitant]
     Dosage: 5 MG, QD
  11. MACROBID [Concomitant]
     Dosage: 50 G, QD

REACTIONS (7)
  - ATRIAL FIBRILLATION [None]
  - FAILURE TO THRIVE [None]
  - COUGH [None]
  - SOMNOLENCE [None]
  - BLOOD PRESSURE DECREASED [None]
  - RHINORRHOEA [None]
  - DECREASED APPETITE [None]
